FAERS Safety Report 7803329 (Version 3)
Quarter: 2014Q1

REPORT INFORMATION
  Report Type: Spontaneous
  Country: US (occurrence: US)
  Receive Date: 20110208
  Receipt Date: 20140313
  Transmission Date: 20141002
  Serious: Yes (Hospitalization, Other)
  Sender: FDA-Public Use
  Company Number: US-BAYER-2011-011903

PATIENT
  Age: 36 Year
  Sex: Female
  Weight: 50 kg

DRUGS (25)
  1. YASMIN [Suspect]
     Indication: CONTRACEPTION
     Dosage: UNK
     Route: 048
     Dates: start: 200311, end: 200801
  2. YASMIN [Suspect]
     Indication: PREMENSTRUAL SYNDROME
  3. YAZ [Suspect]
     Dosage: UNK
     Dates: start: 2006, end: 2007
  4. OCELLA [Suspect]
  5. MEDROXYPROGESTERONE [Concomitant]
     Indication: MENSTRUATION IRREGULAR
     Dosage: UNK
     Dates: start: 200704, end: 200801
  6. LEVAQUIN [Concomitant]
     Indication: ANTIBIOTIC THERAPY
     Dosage: 500 MG, QD
     Dates: start: 20070112, end: 20070113
  7. CLINDAMYCIN [Concomitant]
     Dosage: UNK
     Dates: start: 2007
  8. BACTRIM [Concomitant]
     Indication: URINARY TRACT INFECTION
     Dosage: 800 / 160 MG, 2 TABLETS PER DAY
     Dates: start: 20070110, end: 20070112
  9. POTASSIUM [Concomitant]
     Dosage: UNK
     Dates: start: 200701
  10. AMBIEN [Concomitant]
     Indication: INSOMNIA
     Dosage: UNK
     Dates: start: 2000, end: 2001
  11. AMBIEN [Concomitant]
     Indication: INSOMNIA
     Dosage: UNK
     Dates: start: 2006, end: 2007
  12. AMITRIPTYLINE [Concomitant]
     Indication: PAIN
     Dosage: 50 MG, QD
     Dates: start: 20061224, end: 20070116
  13. EFFEXOR [Concomitant]
     Indication: ANXIETY
     Dosage: UNK
     Dates: start: 200202
  14. EFFEXOR [Concomitant]
     Indication: DEPRESSION
     Dosage: UNK
     Dates: start: 200003
  15. ZOLOFT [Concomitant]
     Indication: ANXIETY
     Dosage: UNK
     Dates: start: 2001
  16. ZOLOFT [Concomitant]
     Indication: DEPRESSION
  17. OMACOR [Concomitant]
     Indication: BLOOD CHOLESTEROL INCREASED
     Dosage: 1 G, QD
     Dates: start: 20061024, end: 20061227
  18. CELEBREX [Concomitant]
     Indication: PAIN
     Dosage: 200 MG, QD
     Dates: start: 20061224, end: 20070113
  19. ZANAFLEX [Concomitant]
     Indication: MUSCLE SPASMS
     Dosage: 4 MG, 2 TABLETS, QD
     Dates: start: 20061224, end: 20070113
  20. SONATA [Concomitant]
     Indication: MUSCLE SPASMS
     Dosage: 10 MG, 2 TABLETS, HS
     Dates: start: 20061224, end: 20070113
  21. SONATA [Concomitant]
     Indication: MUSCLE SPASMS
     Dosage: UNK
  22. SKELAXIN [Concomitant]
     Indication: MUSCLE SPASMS
     Dosage: 800 MG, 2 TABLETS, QD
     Dates: start: 20061224, end: 20070113
  23. DIFLUCAN [Concomitant]
     Indication: URINARY TRACT INFECTION
     Dosage: 150 MG, QD
     Dates: start: 20070108
  24. VALTREX [Concomitant]
     Indication: ANTIVIRAL TREATMENT
     Dosage: 1 G, BID
     Dates: start: 20070110, end: 20070113
  25. IBUPROFEN [Concomitant]
     Dosage: UNK
     Dates: start: 20071017, end: 20071021

REACTIONS (27)
  - Convulsion [None]
  - Cerebrovascular accident [None]
  - Pain [None]
  - Emotional distress [None]
  - Anxiety [None]
  - Hemiparesis [None]
  - Dizziness [None]
  - Nausea [None]
  - Diarrhoea [None]
  - Fatigue [None]
  - Cognitive disorder [None]
  - Visual acuity reduced [None]
  - Deafness unilateral [None]
  - Amnesia [None]
  - Speech disorder [None]
  - Malaise [None]
  - Dysphagia [None]
  - Balance disorder [None]
  - Asthenia [None]
  - Vertigo [None]
  - Headache [None]
  - Eye movement disorder [None]
  - Unevaluable event [None]
  - Loss of consciousness [None]
  - Fear of disease [None]
  - Injury [None]
  - General physical health deterioration [None]
